FAERS Safety Report 10581114 (Version 1)
Quarter: 2014Q4

REPORT INFORMATION
  Report Type: Spontaneous
  Country: US (occurrence: None)
  Receive Date: 20141112
  Receipt Date: 20141112
  Transmission Date: 20150529
  Serious: Yes (Hospitalization)
  Sender: FDA-Public Use
  Company Number: None

PATIENT
  Age: 69 Year
  Sex: Male
  Weight: 90.27 kg

DRUGS (2)
  1. ELOXATIN [Suspect]
     Active Substance: OXALIPLATIN
  2. 5-FLUOROURACIL (5-FU) [Suspect]
     Active Substance: FLUOROURACIL

REACTIONS (8)
  - Anaemia [None]
  - Nausea [None]
  - Syncope [None]
  - Vomiting [None]
  - Diarrhoea [None]
  - Dysphagia [None]
  - Blood pressure decreased [None]
  - Dehydration [None]

NARRATIVE: CASE EVENT DATE: 20141103
